FAERS Safety Report 15574414 (Version 2)
Quarter: 2019Q4

REPORT INFORMATION
  Report Type: Report from Study
  Country: US (occurrence: US)
  Receive Date: 20181101
  Receipt Date: 20191203
  Transmission Date: 20200122
  Serious: Yes (Other)
  Sender: FDA-Public Use
  Company Number: PHEH2018US045751

PATIENT
  Sex: Female

DRUGS (1)
  1. GILENYA [Suspect]
     Active Substance: FINGOLIMOD HYDROCHLORIDE
     Indication: MULTIPLE SCLEROSIS
     Dosage: 0.5 MG, QD
     Route: 048

REACTIONS (8)
  - Macular degeneration [Unknown]
  - Pain in extremity [Unknown]
  - Visual impairment [Unknown]
  - Mobility decreased [Unknown]
  - Back pain [Unknown]
  - Fatigue [Unknown]
  - Mycotic allergy [Unknown]
  - Asthenia [Unknown]
